FAERS Safety Report 9321465 (Version 2)
Quarter: 2013Q2

REPORT INFORMATION
  Report Type: Spontaneous
  Country: GB (occurrence: GB)
  Receive Date: 20130531
  Receipt Date: 20130612
  Transmission Date: 20140414
  Serious: Yes (Life-Threatening)
  Sender: FDA-Public Use
  Company Number: PHHY2013GB054352

PATIENT
  Age: 64 Year
  Sex: 0

DRUGS (1)
  1. AMOXICILLIN-CLAVULANIC ACID [Suspect]
     Dosage: 120 MG, UNK

REACTIONS (4)
  - Reperfusion injury [Unknown]
  - Anaphylactic reaction [Recovering/Resolving]
  - Cardiac arrest [Recovering/Resolving]
  - Cardiac output decreased [Recovered/Resolved]
